FAERS Safety Report 24729361 (Version 2)
Quarter: 2025Q3

REPORT INFORMATION
  Report Type: Spontaneous
  Country: US (occurrence: US)
  Receive Date: 20241213
  Receipt Date: 20250810
  Transmission Date: 20251020
  Serious: No
  Sender: ALEXION PHARMACEUTICALS
  Company Number: US-PROCTER+GAMBLE-PH24009055

PATIENT
  Age: 57 Year
  Sex: Male

DRUGS (3)
  1. PRILOSEC OTC [Suspect]
     Active Substance: OMEPRAZOLE MAGNESIUM
     Dosage: 2 TABLET, 1 /DAY
  2. PRILOSEC OTC [Suspect]
     Active Substance: OMEPRAZOLE MAGNESIUM
     Dosage: 1 TABLET, 1 /DAY, THE LAST 3-4 DAYS HE STARTED WEANING DOWN FROM 2 PRILOSEC TO 1, WEANED OFF
     Dates: start: 202411
  3. PEPCID [Suspect]
     Active Substance: FAMOTIDINE
     Dosage: 2 DOSAGE FORM, 1 /DAY

REACTIONS (7)
  - Nausea [Unknown]
  - Vomiting [Unknown]
  - Influenza like illness [Unknown]
  - Feeding disorder [Unknown]
  - Prescribed overdose [Unknown]
  - Off label use [Unknown]
  - Incorrect product administration duration [Unknown]

NARRATIVE: CASE EVENT DATE: 20240101
